FAERS Safety Report 22245716 (Version 1)
Quarter: 2023Q2

REPORT INFORMATION
  Report Type: Report from Study
  Country: PT (occurrence: PT)
  Receive Date: 20230424
  Receipt Date: 20230424
  Transmission Date: 20230721
  Serious: Yes (Life-Threatening, Hospitalization)
  Sender: FDA-Public Use
  Company Number: PT-Merck KGaA-8063262

PATIENT
  Age: 60 Year
  Sex: Male
  Weight: 55 kg

DRUGS (5)
  1. FLUOROURACIL [Suspect]
     Active Substance: FLUOROURACIL
     Indication: Laryngeal cancer metastatic
     Dosage: 1550 MILLIGRAM/SQ. METER
     Route: 042
     Dates: start: 20151221, end: 20151221
  2. CISPLATIN [Suspect]
     Active Substance: CISPLATIN
     Indication: Laryngeal cancer metastatic
     Dosage: 155 MILLIGRAM/SQ. METER
     Route: 065
     Dates: start: 20151221, end: 20151221
  3. ERBITUX [Suspect]
     Active Substance: CETUXIMAB
     Indication: Laryngeal cancer metastatic
     Dosage: 413 MILLIGRAM/SQ. METER, 640 MG
     Route: 042
     Dates: start: 20151221, end: 20151221
  4. Dexametazona [Concomitant]
     Indication: Premedication
     Dosage: 10 MILLIGRAM, 0.5 DAYS
     Route: 042
     Dates: start: 20151221, end: 20151221
  5. Clemastina [Concomitant]
     Indication: Premedication
     Dosage: 2 MILLIGRAM, 0.5 DAYS
     Route: 042
     Dates: start: 20151221, end: 20151221

REACTIONS (3)
  - Myocardial ischaemia [Recovered/Resolved]
  - Hypertension [Recovered/Resolved with Sequelae]
  - Tachycardia [Recovered/Resolved with Sequelae]

NARRATIVE: CASE EVENT DATE: 20151221
